FAERS Safety Report 10206419 (Version 1)
Quarter: 2014Q2

REPORT INFORMATION
  Report Type: Report from Study
  Country: AT (occurrence: AT)
  Receive Date: 20140530
  Receipt Date: 20140530
  Transmission Date: 20141212
  Serious: Yes (Death, Other)
  Sender: FDA-Public Use
  Company Number: AT-B.I. PHARMACEUTICALS,INC./RIDGEFIELD-2014-BI-23322GD

PATIENT
  Age: 45 Year
  Sex: Male

DRUGS (6)
  1. NEVIRAPINE [Suspect]
     Indication: HIV INFECTION
     Route: 065
  2. NEVIRAPINE [Suspect]
     Indication: HIV INFECTION
  3. ZIDOVUDINE [Suspect]
     Indication: HIV INFECTION
     Route: 065
  4. ZIDOVUDINE [Suspect]
     Indication: HIV INFECTION
  5. LAMIVUDINE [Suspect]
     Indication: HIV INFECTION
     Route: 065
  6. LAMIVUDINE [Suspect]
     Indication: HIV INFECTION

REACTIONS (3)
  - Death [Fatal]
  - Hepatocellular carcinoma [Unknown]
  - Chronic hepatitis B [Unknown]
